FAERS Safety Report 17675430 (Version 1)
Quarter: 2020Q2

REPORT INFORMATION
  Report Type: Spontaneous
  Country: US (occurrence: US)
  Receive Date: 20200416
  Receipt Date: 20200416
  Transmission Date: 20200714
  Serious: Yes (Other)
  Sender: FDA-Public Use
  Company Number: US-LUNDBECK-DKLU3015250

PATIENT
  Age: 71 Year
  Sex: Male

DRUGS (1)
  1. NORTHERA [Suspect]
     Active Substance: DROXIDOPA
     Indication: TYPE 2 DIABETES MELLITUS
     Dosage: WITH MEALS
     Route: 048
     Dates: start: 20191118

REACTIONS (2)
  - Product use in unapproved indication [Unknown]
  - Throat cancer [Not Recovered/Not Resolved]
